FAERS Safety Report 23604917 (Version 1)
Quarter: 2024Q1

REPORT INFORMATION
  Report Type: Spontaneous
  Country: US (occurrence: US)
  Receive Date: 20240307
  Receipt Date: 20240307
  Transmission Date: 20240409
  Serious: Yes (Other)
  Sender: FDA-Public Use
  Company Number: US-IMMUNOGEN, INC.-US-IMGN-24-00059

PATIENT
  Age: 67 Year
  Sex: Female

DRUGS (2)
  1. ELAHERE [Suspect]
     Active Substance: MIRVETUXIMAB SORAVTANSINE-GYNX
     Indication: Product used for unknown indication
     Dosage: UNK UNK, UNK
     Route: 065
  2. FIRDAPSE [Concomitant]
     Active Substance: AMIFAMPRIDINE PHOSPHATE
     Indication: Product used for unknown indication
     Dosage: UNK, UNK
     Route: 065
     Dates: start: 20231114

REACTIONS (1)
  - Vision blurred [Recovering/Resolving]

NARRATIVE: CASE EVENT DATE: 20240109
